FAERS Safety Report 20437917 (Version 5)
Quarter: 2022Q2

REPORT INFORMATION
  Report Type: Spontaneous
  Country: US (occurrence: US)
  Receive Date: 20220207
  Receipt Date: 20220508
  Transmission Date: 20220720
  Serious: Yes (Hospitalization)
  Sender: FDA-Public Use
  Company Number: US-UCBSA-2022004291

PATIENT
  Sex: Female
  Weight: 100 kg

DRUGS (1)
  1. CIMZIA [Suspect]
     Active Substance: CERTOLIZUMAB PEGOL
     Indication: Rheumatoid arthritis
     Dosage: 200 MILLIGRAM, EV 2 WEEKS(QOW)
     Route: 058
     Dates: start: 202110

REACTIONS (7)
  - Pleural effusion [Unknown]
  - Full blood count decreased [Unknown]
  - Infusion [Unknown]
  - Rheumatoid arthritis [Unknown]
  - Swelling [Unknown]
  - Oropharyngeal pain [Unknown]
  - Drug ineffective [Unknown]
